FAERS Safety Report 10621984 (Version 1)
Quarter: 2014Q4

REPORT INFORMATION
  Report Type: Spontaneous
  Country: US (occurrence: None)
  Receive Date: 20141201
  Receipt Date: 20141201
  Transmission Date: 20150529
  Serious: No
  Sender: FDA-Public Use
  Company Number: None

PATIENT
  Age: 69 Year
  Sex: Female
  Weight: 113.4 kg

DRUGS (11)
  1. SYNTHROID [Concomitant]
     Active Substance: LEVOTHYROXINE SODIUM
  2. PREDNISONE. [Concomitant]
     Active Substance: PREDNISONE
  3. CELEXA [Concomitant]
     Active Substance: CITALOPRAM HYDROBROMIDE
  4. PLAVIX [Concomitant]
     Active Substance: CLOPIDOGREL BISULFATE
  5. MULTI VITAMIN [Concomitant]
     Active Substance: VITAMINS
  6. PRAVASTATIN [Concomitant]
     Active Substance: PRAVASTATIN\PRAVASTATIN SODIUM
  7. METROPOLOL [Concomitant]
     Active Substance: METOPROLOL
  8. LEVAQUIN [Suspect]
     Active Substance: LEVOFLOXACIN
     Indication: SINUSITIS
     Route: 048
     Dates: start: 20141009, end: 20141017
  9. DICLOFENAC [Concomitant]
     Active Substance: DICLOFENAC
  10. OXYCONTIN [Concomitant]
     Active Substance: OXYCODONE HYDROCHLORIDE
  11. ASA [Concomitant]
     Active Substance: ASPIRIN

REACTIONS (4)
  - Rotator cuff syndrome [None]
  - Myalgia [None]
  - Pain [None]
  - Tendonitis [None]

NARRATIVE: CASE EVENT DATE: 20141018
